FAERS Safety Report 13289263 (Version 2)
Quarter: 2017Q1

REPORT INFORMATION
  Report Type: Spontaneous
  Country: US (occurrence: US)
  Receive Date: 20170302
  Receipt Date: 20170313
  Transmission Date: 20170428
  Serious: Yes (Death)
  Sender: FDA-Public Use
  Company Number: US-LPDUSPRD-20170215

PATIENT
  Age: 41 Year
  Sex: Male
  Weight: 53.98 kg

DRUGS (2)
  1. VENOFER [Suspect]
     Active Substance: IRON SUCROSE
     Dosage: 200 MG IN NSS OVER 15 MIN
     Route: 042
     Dates: start: 201512, end: 20161007
  2. ZELBORAF [Concomitant]
     Active Substance: VEMURAFENIB
     Dosage: DOSE NOT PROVIDED
     Route: 048

REACTIONS (2)
  - Metastatic malignant melanoma [Fatal]
  - Disease progression [Fatal]

NARRATIVE: CASE EVENT DATE: 20161121
